FAERS Safety Report 7100867-2 (Version None)
Quarter: 2010Q4

REPORT INFORMATION
  Report Type: 
  Country: None (occurrence: None)
  Receive Date: 20101113
  Receipt Date: 20100421
  Transmission Date: 20110411
  Serious: Yes (Other)
  Sender: FDA-Public Use
  Company Number: US-ALLERGAN-1003922US

PATIENT
  Age: 53 Year
  Sex: Female

DRUGS (1)
  1. BOTOX COSMETIC [Suspect]
     Indication: SKIN WRINKLING
     Dosage: 15 UNITS, SINGLE
     Route: 030
     Dates: start: 20100322, end: 20100322

REACTIONS (1)
  - ANAPHYLACTIC REACTION [None]
